FAERS Safety Report 7132353-8 (Version None)
Quarter: 2010Q4

REPORT INFORMATION
  Report Type: 
  Country: None (occurrence: None)
  Receive Date: 20101202
  Receipt Date: 20101122
  Transmission Date: 20110411
  Serious: Yes (Hospitalization)
  Sender: FDA-Public Use
  Company Number: US-TEVA-256381USA

PATIENT
  Age: 13 Month

DRUGS (1)
  1. DIPHENHYDRAMINE HYDROCHLORIDE [Suspect]

REACTIONS (2)
  - ACCIDENTAL OVERDOSE [None]
  - SUPRAVENTRICULAR TACHYCARDIA [None]
